FAERS Safety Report 15452875 (Version 1)
Quarter: 2018Q4

REPORT INFORMATION
  Report Type: Report from Study
  Country: GB (occurrence: GB)
  Receive Date: 20181001
  Receipt Date: 20181001
  Transmission Date: 20190204
  Serious: Yes (Other)
  Sender: FDA-Public Use
  Company Number: GB-PFIZER INC-2018388032

PATIENT

DRUGS (1)
  1. LEVETIRACETAM. [Suspect]
     Active Substance: LEVETIRACETAM
     Dosage: UNK

REACTIONS (4)
  - Simple partial seizures [Unknown]
  - Petit mal epilepsy [Unknown]
  - Focal dyscognitive seizures [Unknown]
  - Generalised tonic-clonic seizure [Unknown]
